FAERS Safety Report 4434865-4 (Version None)
Quarter: 2004Q3

REPORT INFORMATION
  Report Type: 
  Country: None (occurrence: None)
  Receive Date: 20040827
  Receipt Date: 20040820
  Transmission Date: 20050211
  Serious: Yes (Hospitalization)
  Sender: FDA-Public Use
  Company Number: 200413132FR

PATIENT
  Age: 38 Year
  Sex: Female

DRUGS (4)
  1. METHOTREXATE [Suspect]
     Dates: start: 20010315, end: 20010615
  2. ARAVA [Suspect]
     Dates: start: 20010715, end: 20030515
  3. ENBREL [Suspect]
     Route: 042
     Dates: start: 20030615, end: 20040115
  4. REMICADE [Suspect]
     Route: 042
     Dates: start: 20011015, end: 20030515

REACTIONS (4)
  - HAEMOGLOBIN DECREASED [None]
  - LYMPHOCYTE MORPHOLOGY ABNORMAL [None]
  - METASTASES TO LIVER [None]
  - NON-HODGKIN'S LYMPHOMA [None]
